FAERS Safety Report 5190274-4 (Version None)
Quarter: 2006Q4

REPORT INFORMATION
  Report Type: 
  Country: None (occurrence: None)
  Receive Date: 20061222
  Receipt Date: 20060802
  Transmission Date: 20070319
  Serious: Yes (Other)
  Sender: FDA-Public Use
  Company Number: US-AMGEN-US188664

PATIENT
  Sex: Female

DRUGS (10)
  1. ARANESP [Suspect]
     Indication: RENAL FAILURE CHRONIC
     Route: 058
     Dates: start: 20060724, end: 20060724
  2. COREG [Concomitant]
  3. SYNTHROID [Concomitant]
  4. LASIX [Concomitant]
  5. LIPITOR [Concomitant]
  6. COZAAR [Concomitant]
  7. ALDACTONE [Concomitant]
  8. HUMULIN R [Concomitant]
  9. COUMADIN [Concomitant]
  10. ZETIA [Concomitant]

REACTIONS (4)
  - HYPERSENSITIVITY [None]
  - PRURITUS [None]
  - RASH ERYTHEMATOUS [None]
  - RASH GENERALISED [None]
